FAERS Safety Report 7763947-4 (Version None)
Quarter: 2011Q3

REPORT INFORMATION
  Report Type: 
  Country: None (occurrence: None)
  Receive Date: 20110921
  Receipt Date: 20110908
  Transmission Date: 20111222
  Serious: Yes (Hospitalization, Other)
  Sender: FDA-Public Use
  Company Number: US-ELI_LILLY_AND_COMPANY-US201108001266

PATIENT
  Sex: Female

DRUGS (13)
  1. FORTEO [Suspect]
     Indication: OSTEOPOROSIS
     Dosage: 20 UG, QD
     Dates: start: 20110720, end: 20110720
  2. FORTEO [Suspect]
     Dosage: 20 UG, QD
     Route: 065
     Dates: start: 20110818
  3. PHENERGAN HCL [Concomitant]
  4. AMBIEN [Concomitant]
     Indication: SLEEP DISORDER
     Dosage: 10 MG, QD
  5. FLEXERIL [Concomitant]
     Dosage: 10 MG, TID
  6. NEURONTIN [Concomitant]
     Dosage: 600 MG, QID
  7. PRILOSEC [Concomitant]
     Indication: GASTROOESOPHAGEAL REFLUX DISEASE
  8. CYMBALTA [Concomitant]
     Indication: DEPRESSION
     Dosage: 90 MG, QD
  9. BACLOFEN [Concomitant]
     Dosage: 10 MG, QID
  10. PREVACID [Concomitant]
     Dosage: 30 MG, QD
  11. REQUIP [Concomitant]
     Indication: DYSKINESIA
  12. DIAZEPAM [Concomitant]
     Indication: ANXIETY
  13. FORTEO [Suspect]
     Dosage: 20 UG, QD

REACTIONS (18)
  - DYSPEPSIA [None]
  - DYSPHONIA [None]
  - IRRITABILITY [None]
  - NAUSEA [None]
  - PSYCHIATRIC SYMPTOM [None]
  - DYSPNOEA [None]
  - TREMOR [None]
  - FATIGUE [None]
  - DRUG DOSE OMISSION [None]
  - TENSION [None]
  - HEADACHE [None]
  - DIARRHOEA [None]
  - SUICIDAL IDEATION [None]
  - MALAISE [None]
  - PARAESTHESIA [None]
  - BURNING SENSATION [None]
  - DRY MOUTH [None]
  - PNEUMONIA [None]
